FAERS Safety Report 21746105 (Version 2)
Quarter: 2023Q1

REPORT INFORMATION
  Report Type: Spontaneous
  Country: US (occurrence: US)
  Receive Date: 20221219
  Receipt Date: 20230125
  Transmission Date: 20230418
  Serious: No
  Sender: FDA-Public Use
  Company Number: US-ABBVIE-4228382

PATIENT
  Sex: Female

DRUGS (1)
  1. HUMIRA [Suspect]
     Active Substance: ADALIMUMAB
     Indication: Product used for unknown indication
     Dosage: FORM STRENGTH 40 MG
     Route: 058

REACTIONS (7)
  - Needle issue [Not Recovered/Not Resolved]
  - Injection site bruising [Unknown]
  - Cardiac infection [Unknown]
  - Injection site urticaria [Unknown]
  - C-reactive protein increased [Unknown]
  - Carditis [Unknown]
  - Infection [Unknown]
